FAERS Safety Report 23102843 (Version 1)
Quarter: 2023Q4

REPORT INFORMATION
  Report Type: Spontaneous
  Country: GB (occurrence: GB)
  Receive Date: 20231025
  Receipt Date: 20231025
  Transmission Date: 20240110
  Serious: Yes (Other)
  Sender: FDA-Public Use
  Company Number: None

PATIENT
  Age: 95 Year
  Sex: Female
  Weight: 48 kg

DRUGS (10)
  1. CITALOPRAM [Suspect]
     Active Substance: CITALOPRAM HYDROBROMIDE
     Indication: Anxiety
     Dosage: ONE TABLET DAILY ANTI-ANXIETY, LAST ADMIN DATE: 2023
     Route: 048
     Dates: start: 20230927
  2. CITALOPRAM [Suspect]
     Active Substance: CITALOPRAM HYDROBROMIDE
     Indication: Anxiety
     Route: 048
     Dates: start: 20231011, end: 20231012
  3. TRIMETHOPRIM NTN [Concomitant]
     Indication: Product used for unknown indication
     Dosage: ONE TABLET TWICE A DAY (ANTIBACTERIAL)
     Route: 065
     Dates: start: 20230927, end: 20231002
  4. NITROFURANTOIN [Concomitant]
     Active Substance: NITROFURANTOIN
     Indication: Product used for unknown indication
     Dosage: ONE CAPSULE TWICE A DAY WITH FOOD (ANTIBACTERIAL)
     Route: 065
     Dates: start: 20231002, end: 20231007
  5. Adcal [Concomitant]
     Indication: Product used for unknown indication
     Dosage: TWO TO BE TAKEN TWICE A DAY
     Route: 065
     Dates: start: 20221111
  6. KETOPROFEN [Concomitant]
     Active Substance: KETOPROFEN
     Indication: Inflammation
     Dosage: APPLY UP TO THREE TIMES A DAY (ANTI-INFLAMMATOR...
     Route: 065
     Dates: start: 20221111
  7. VALSARTAN [Concomitant]
     Active Substance: VALSARTAN
     Indication: Product used for unknown indication
     Dosage: ONE TO BE TAKEN EACH DAY
     Route: 065
     Dates: start: 20221111
  8. SOLIFENACIN [Concomitant]
     Active Substance: SOLIFENACIN
     Indication: Micturition urgency
     Dosage: ONE TABLET DAILY (TO REDUCE BLADDER URGE)
     Route: 065
     Dates: start: 20230608
  9. AMLODIPINE [Concomitant]
     Active Substance: AMLODIPINE BESYLATE
     Indication: Product used for unknown indication
     Dosage: ONE TO BE TAKEN DAILY
     Route: 065
     Dates: start: 20221111
  10. PROCHLORPERAZINE [Concomitant]
     Active Substance: PROCHLORPERAZINE
     Indication: Product used for unknown indication
     Dosage: ONE TABLET UP TO THREE TIMES A DAY IF NEEDED (A...
     Route: 065
     Dates: start: 20231002, end: 20231012

REACTIONS (2)
  - Dizziness [Recovered/Resolved]
  - Fall [Recovered/Resolved]

NARRATIVE: CASE EVENT DATE: 20231011
